FAERS Safety Report 4705650-0 (Version None)
Quarter: 2005Q2

REPORT INFORMATION
  Report Type: 
  Country: None (occurrence: None)
  Receive Date: 20050630
  Receipt Date: 20050602
  Transmission Date: 20051028
  Serious: Yes (Death)
  Sender: FDA-Public Use
  Company Number: HQWYE772018MAY05

PATIENT
  Sex: Male

DRUGS (12)
  1. PROTIUM (PANTOPRAZOLE, TABLET, DELAYED RELEASE) [Suspect]
     Dosage: 20 MG 1X PER 1 DAY ORAL
     Route: 048
  2. ALLOPURINOL [Suspect]
     Dosage: 200 MG 1X PER 1 DAY ORAL
     Route: 048
  3. BECLOMETHASONE DIPROPIONATE [Suspect]
  4. COVERSYL (PERINDOPRIL, ) [Suspect]
     Dosage: 4 MG 1X PER 1 DAY ORAL
     Route: 048
  5. DIGOXIN [Suspect]
     Dosage: 250 MG 1X PER 1 DAY, ORAL
     Route: 048
  6. FUROSEMIDE [Suspect]
     Dosage: 80 MG 1X PER 1 DAY, ORAL
     Route: 048
  7. ACETAMINOPHEN [Suspect]
     Dosage: ORAL
     Route: 048
  8. PERINDOPRIL (PERINDOPRIL) [Suspect]
  9. SIMVASTATIN [Suspect]
     Dosage: 40 MG 1X PER 1 DAY, ORAL
     Route: 048
  10. SPIRIVA [Suspect]
     Dosage: 1 DOSAGE FORM 1X PER 1 DAY, INHALATION
     Route: 055
  11. VENTOLIN [Suspect]
     Dosage: ^SOME TIME(S) SOME DF^, INHALATION
     Route: 055
  12. WARFARIN SODIUM [Suspect]
     Dosage: ^SOME TIME(S), SOME DF^, ORAL
     Route: 048

REACTIONS (1)
  - AORTIC DISSECTION [None]
